FAERS Safety Report 24909219 (Version 3)
Quarter: 2025Q3

REPORT INFORMATION
  Report Type: Report from Study
  Country: US (occurrence: US)
  Receive Date: 20250131
  Receipt Date: 20250724
  Transmission Date: 20251020
  Serious: No
  Sender: SUNOVION
  Company Number: US-SMPA-2025SPA000898AA

PATIENT

DRUGS (11)
  1. ORGOVYX [Suspect]
     Active Substance: RELUGOLIX
     Indication: Prostate cancer
     Dosage: 360 MG, SINGLE
     Route: 048
     Dates: start: 202406, end: 202406
  2. ORGOVYX [Suspect]
     Active Substance: RELUGOLIX
     Dosage: 120 MG, QD
     Route: 048
     Dates: start: 202406
  3. AMLODIPINE [Concomitant]
     Active Substance: AMLODIPINE BESYLATE
     Route: 065
  4. ATORVASTATIN [Concomitant]
     Active Substance: ATORVASTATIN
     Route: 065
  5. CLOPIDOGREL [Concomitant]
     Active Substance: CLOPIDOGREL BISULFATE
     Route: 065
  6. ELIQUIS [Concomitant]
     Active Substance: APIXABAN
     Route: 065
  7. EZETIMIBE [Concomitant]
     Active Substance: EZETIMIBE
     Route: 065
  8. GLIMEPIRIDE [Concomitant]
     Active Substance: GLIMEPIRIDE
     Route: 065
  9. METFORMIN [Concomitant]
     Active Substance: METFORMIN HYDROCHLORIDE
     Route: 065
  10. METOPROLOL TARTRATE [Concomitant]
     Active Substance: METOPROLOL TARTRATE
     Route: 065
  11. OMEPRAZOLE [Concomitant]
     Active Substance: OMEPRAZOLE
     Route: 065

REACTIONS (3)
  - Asthenia [Unknown]
  - Fatigue [Unknown]
  - Product dose omission issue [Recovered/Resolved]
